FAERS Safety Report 15713177 (Version 2)
Quarter: 2019Q1

REPORT INFORMATION
  Report Type: Spontaneous
  Country: US (occurrence: US)
  Receive Date: 20181212
  Receipt Date: 20190108
  Transmission Date: 20190417
  Serious: Yes (Hospitalization)
  Sender: FDA-Public Use
  Company Number: US-ELI_LILLY_AND_COMPANY-US201812003109

PATIENT
  Sex: Male
  Weight: 83 kg

DRUGS (3)
  1. TADALAFIL. [Suspect]
     Active Substance: TADALAFIL
     Indication: PULMONARY ARTERIAL HYPERTENSION
     Dosage: UNK, UNKNOWN
     Route: 065
  2. ADCIRCA [Suspect]
     Active Substance: TADALAFIL
     Indication: PULMONARY ARTERIAL HYPERTENSION
     Dosage: UNK UNK, UNKNOWN
     Route: 065
  3. REMODULIN [Suspect]
     Active Substance: TREPROSTINIL
     Indication: PULMONARY ARTERIAL HYPERTENSION
     Dosage: 82 NG/KG/MIN, CONTINUOUS
     Route: 042
     Dates: start: 20130926

REACTIONS (8)
  - Myalgia [Unknown]
  - Pneumonia [Unknown]
  - Dyspnoea [Unknown]
  - Arthralgia [Unknown]
  - Platelet count decreased [Unknown]
  - Skin reaction [Unknown]
  - Pain in jaw [Unknown]
  - Rash [Unknown]
